FAERS Safety Report 14420833 (Version 1)
Quarter: 2018Q1

REPORT INFORMATION
  Report Type: Spontaneous
  Country: US (occurrence: US)
  Receive Date: 20180122
  Receipt Date: 20180122
  Transmission Date: 20180509
  Serious: Yes (Other)
  Sender: FDA-Public Use
  Company Number: US-ROCHE-2025584

PATIENT
  Age: 77 Year
  Sex: Male
  Weight: 90.7 kg

DRUGS (3)
  1. HYDROCORTISON [Concomitant]
     Active Substance: HYDROCORTISONE
     Dosage: ONGOING: NO
     Route: 065
     Dates: start: 20171113, end: 20171114
  2. RITUXAN [Suspect]
     Active Substance: RITUXIMAB
     Indication: MICROSCOPIC POLYANGIITIS
     Dosage: ONGOING: UNKNOWN
     Route: 065
     Dates: start: 20171015, end: 20171106
  3. HYDROCORTISON [Concomitant]
     Active Substance: HYDROCORTISONE
     Dosage: ONGOING: NO
     Route: 065
     Dates: start: 20171112, end: 20171113

REACTIONS (3)
  - Cellulitis [Recovering/Resolving]
  - Oral candidiasis [Recovering/Resolving]
  - Skin lesion [Not Recovered/Not Resolved]

NARRATIVE: CASE EVENT DATE: 20171114
